FAERS Safety Report 8117094-2 (Version None)
Quarter: 2012Q1

REPORT INFORMATION
  Report Type: 
  Country: None (occurrence: None)
  Receive Date: 20120206
  Receipt Date: 20120123
  Transmission Date: 20120608
  Serious: Yes (Other)
  Sender: FDA-Public Use
  Company Number: RU-UCBSA-050416

PATIENT
  Age: 63 Year
  Sex: Female
  Weight: 60.2 kg

DRUGS (4)
  1. METHOTREXATE [Concomitant]
     Indication: RHEUMATOID ARTHRITIS
     Route: 048
     Dates: start: 20050314
  2. ACID FOLIC [Concomitant]
     Indication: PROPHYLAXIS
     Route: 048
     Dates: start: 20040101
  3. CIMZIA [Suspect]
     Indication: RHEUMATOID ARTHRITIS
     Dosage: 67 DOSES RECEIVED.
     Route: 058
     Dates: start: 20080220, end: 20101013
  4. CIMZIA [Suspect]
     Dosage: 57 DOSES RECEIVED
     Route: 058
     Dates: start: 20051019, end: 20080219

REACTIONS (1)
  - EAR INFECTION [None]
